FAERS Safety Report 4331405-5 (Version None)
Quarter: 2004Q1

REPORT INFORMATION
  Report Type: 
  Country: None (occurrence: None)
  Receive Date: 20040331
  Receipt Date: 20040319
  Transmission Date: 20041129
  Serious: No
  Sender: FDA-Public Use
  Company Number: JP-JNJFOC-20040203499

PATIENT
  Age: 65 Year
  Sex: Female

DRUGS (6)
  1. REMICADE [Suspect]
     Indication: RHEUMATOID ARTHRITIS
     Dosage: 201 MG, 1 IN 1 AS NECCESARY, INTRAVENOUS DRIP
     Route: 041
     Dates: start: 20031118, end: 20031118
  2. FAROPENEM SODIUM(FAROPENEM SODIUM) [Concomitant]
  3. METHOTREXATE [Concomitant]
  4. ROCEPHIN [Concomitant]
  5. DICLOFENAC SODIUM [Concomitant]
  6. PREDNISOLONE [Concomitant]

REACTIONS (1)
  - APPENDICITIS [None]
